FAERS Safety Report 15237375 (Version 1)
Quarter: 2018Q3

REPORT INFORMATION
  Report Type: Spontaneous
  Country: US (occurrence: US)
  Receive Date: 20180803
  Receipt Date: 20180803
  Transmission Date: 20181010
  Serious: No
  Sender: FDA-Public Use
  Company Number: US-MYLANLABS-2018M1054785

PATIENT
  Sex: Female
  Weight: 87 kg

DRUGS (2)
  1. LIDOCAINE PATCH [Suspect]
     Active Substance: LIDOCAINE
     Indication: BACK DISORDER
     Dosage: 5 %, BID
     Route: 003
  2. LIDOCAINE PATCH [Suspect]
     Active Substance: LIDOCAINE
     Indication: ARTHROPATHY
     Dosage: 5 %, BID
     Route: 003

REACTIONS (4)
  - Product adhesion issue [Not Recovered/Not Resolved]
  - No adverse event [Unknown]
  - Off label use [Not Recovered/Not Resolved]
  - Product quality issue [Not Recovered/Not Resolved]
